FAERS Safety Report 5722013-X (Version None)
Quarter: 2008Q2

REPORT INFORMATION
  Report Type: 
  Country: None (occurrence: None)
  Receive Date: 20080429
  Receipt Date: 20080418
  Transmission Date: 20081010
  Serious: Yes (Other)
  Sender: FDA-Public Use
  Company Number: US-PFIZER INC-2008029035

PATIENT
  Sex: Female
  Weight: 59 kg

DRUGS (3)
  1. SUTENT [Suspect]
     Indication: METASTATIC RENAL CELL CARCINOMA
     Dates: start: 20070801, end: 20080415
  2. SUTENT [Suspect]
  3. ANXIOLYTICS [Concomitant]

REACTIONS (12)
  - DIARRHOEA [None]
  - DISEASE PROGRESSION [None]
  - FATIGUE [None]
  - GASTROINTESTINAL DISORDER [None]
  - HYPERTENSION [None]
  - HYPOTHYROIDISM [None]
  - LUNG NEOPLASM MALIGNANT [None]
  - METASTATIC RENAL CELL CARCINOMA [None]
  - NAUSEA [None]
  - RASH [None]
  - STOMATITIS [None]
  - VISION BLURRED [None]
